FAERS Safety Report 15611713 (Version 2)
Quarter: 2018Q4

REPORT INFORMATION
  Report Type: Spontaneous
  Country: RO (occurrence: RO)
  Receive Date: 20181113
  Receipt Date: 20181121
  Transmission Date: 20190205
  Serious: Yes (Hospitalization, Other)
  Sender: FDA-Public Use
  Company Number: RO-BAYER-2018-209383

PATIENT
  Age: 51 Year
  Sex: Female

DRUGS (1)
  1. ULTRAVIST [Suspect]
     Active Substance: IOPROMIDE
     Indication: COMPUTERISED TOMOGRAM THORAX
     Dosage: UNK, ONCE
     Route: 042
     Dates: start: 20181107, end: 20181107

REACTIONS (5)
  - Laryngeal oedema [Recovered/Resolved]
  - Hypotension [Recovered/Resolved]
  - Anal sphincter atony [Recovered/Resolved]
  - Syncope [Recovered/Resolved]
  - Bradycardia [Recovered/Resolved]

NARRATIVE: CASE EVENT DATE: 20181107
